FAERS Safety Report 9860304 (Version 2)
Quarter: 2014Q1

REPORT INFORMATION
  Report Type: Spontaneous
  Country: JP (occurrence: JP)
  Receive Date: 20140201
  Receipt Date: 20140201
  Transmission Date: 20141002
  Serious: Yes (Other)
  Sender: FDA-Public Use
  Company Number: JP-PFIZER INC-2013369324

PATIENT
  Age: 86 Year
  Sex: Female

DRUGS (15)
  1. AZULFIDINE EN [Suspect]
     Indication: RHEUMATOID ARTHRITIS
     Dosage: 500 MG, DAILY
     Route: 048
     Dates: start: 20130410, end: 20130507
  2. AZULFIDINE EN [Suspect]
     Dosage: 1000 MG, DAILY
     Route: 048
     Dates: start: 20130508, end: 20131106
  3. ALFAROL [Concomitant]
     Dosage: 0.25 UG, 1X/DAY, IN THE MORNING
  4. OMEPRAZOLE [Concomitant]
     Dosage: 20 MG, 1X/DAY, IN THE MORNING
  5. AMLODIPINE OD [Concomitant]
     Dosage: 2.5 MG, 1X/DAY, IN THE MORNING
  6. PREDNISOLONE [Concomitant]
     Dosage: 2 MG, 1X/DAY, IN THE MORNING
  7. CINAL [Concomitant]
     Dosage: 1 G, 2X/DAY
  8. TRAMCET [Concomitant]
     Dosage: 1 DF, 2X/DAY, IN THE MORNING AND IN THE EVENING
  9. PRIMPERAN [Concomitant]
     Dosage: 5 MG, 2X/DAY, IN THE MORNING AND IN THE EVENING
  10. BAKTAR [Concomitant]
     Dosage: 1 TABLET ONCE A DAY IN THE MORNING ON MONDAYS AND THURSDAYS
  11. ISCOTIN [Concomitant]
     Dosage: 100 MG THREE TIMES A DAY AFTER MEALS ON MONDAYS AND THURSDAYS
  12. PYDOXAL [Concomitant]
     Dosage: 10 MG, 3X/DAY, AFTER MEALS
  13. MYSLEE [Concomitant]
     Dosage: 5 MG, 1X/DAY, BEFORE BEDTIME
  14. DEPAS [Concomitant]
     Dosage: 0.5 MG, 1X/DAY, BEFORE BEDTIME
  15. CALONAL [Concomitant]
     Dosage: 400 MG, 3X/DAY, AFTER MEALS

REACTIONS (3)
  - Hypogammaglobulinaemia [Recovering/Resolving]
  - Arthralgia [Recovering/Resolving]
  - Arthralgia [Recovering/Resolving]
